FAERS Safety Report 4285446-7 (Version None)
Quarter: 2004Q1

REPORT INFORMATION
  Report Type: 
  Country: None (occurrence: None)
  Receive Date: 20040202
  Receipt Date: 20040122
  Transmission Date: 20041129
  Serious: Yes (Death, Hospitalization)
  Sender: FDA-Public Use
  Company Number: UKP03000222

PATIENT
  Age: 16 Year
  Sex: Male

DRUGS (5)
  1. ASACOL NON P+G (MESALAMINE) UNKNOWN, UNKNOWNMG [Suspect]
     Indication: COLITIS ULCERATIVE
     Dosage: 400 MG, 3/DAY
     Dates: start: 20020521, end: 20030630
  2. AZATHIOPRINE [Suspect]
     Indication: COLITIS ULCERATIVE
     Dosage: 50 MG, 4/DAY
     Dates: start: 20021101, end: 20030629
  3. ENTOCORT(BUDESONIDE) [Suspect]
     Indication: COLITIS ULCERATIVE
     Dosage: 9 MG, DAILY, ORAL; SEE IMAGE
     Route: 048
     Dates: start: 20030401
  4. ENTOCORT(BUDESONIDE) [Suspect]
     Indication: COLITIS ULCERATIVE
     Dosage: 9 MG, DAILY, ORAL; SEE IMAGE
     Route: 048
     Dates: start: 20030501
  5. ENTOCORT(BUDESONIDE) [Suspect]
     Indication: COLITIS ULCERATIVE
     Dosage: 9 MG, DAILY, ORAL; SEE IMAGE
     Route: 048
     Dates: start: 20030601

REACTIONS (24)
  - ABDOMINAL PAIN UPPER [None]
  - ALANINE AMINOTRANSFERASE DECREASED [None]
  - BLOOD ALKALINE PHOSPHATASE DECREASED [None]
  - BLOOD AMYLASE DECREASED [None]
  - BLOOD CREATININE DECREASED [None]
  - BLOOD SODIUM DECREASED [None]
  - CELLULITIS [None]
  - CIRCULATORY COLLAPSE [None]
  - DISSEMINATED INTRAVASCULAR COAGULATION [None]
  - GASTRIC HAEMORRHAGE [None]
  - GASTROINTESTINAL MUCOSAL DISORDER [None]
  - GASTROINTESTINAL NECROSIS [None]
  - IMMUNOSUPPRESSION [None]
  - LIVER DISORDER [None]
  - LYMPHADENOPATHY [None]
  - LYMPHOCYTE COUNT DECREASED [None]
  - NEUTROPHIL COUNT INCREASED [None]
  - PLATELET COUNT DECREASED [None]
  - PULMONARY INFARCTION [None]
  - RESPIRATORY FAILURE [None]
  - SPLEEN DISORDER [None]
  - STREPTOCOCCAL INFECTION [None]
  - THROMBOSIS [None]
  - VOMITING [None]
